FAERS Safety Report 9996442 (Version 1)
Quarter: 2014Q1

REPORT INFORMATION
  Report Type: Spontaneous
  Country: GB (occurrence: GB)
  Receive Date: 20140311
  Receipt Date: 20140311
  Transmission Date: 20141002
  Serious: Yes (Hospitalization)
  Sender: FDA-Public Use
  Company Number: PHHY2014GB026506

PATIENT
  Age: 44 Year
  Sex: Female

DRUGS (3)
  1. IBUPROFEN [Suspect]
     Dosage: 30-40 DF, DAILY
  2. PARACETAMOL [Concomitant]
  3. CITALOPRAM [Concomitant]

REACTIONS (5)
  - Nephrocalcinosis [Recovering/Resolving]
  - Renal tubular acidosis [Recovering/Resolving]
  - Hypokalaemia [Unknown]
  - Fatigue [Recovering/Resolving]
  - Drug abuse [Unknown]
